FAERS Safety Report 8225397-6 (Version None)
Quarter: 2012Q1

REPORT INFORMATION
  Report Type: 
  Country: None (occurrence: None)
  Receive Date: 20120307
  Receipt Date: 20110322
  Transmission Date: 20120608
  Serious: No
  Sender: FDA-Public Use
  Company Number: PHHY2011US24846

PATIENT
  Age: 70 Year
  Sex: Female

DRUGS (1)
  1. AFINITOR [Suspect]
     Indication: RENAL CELL CARCINOMA
     Dosage: 10 MG, QD, ORAL
     Route: 048
     Dates: start: 20110302, end: 20110317

REACTIONS (4)
  - RASH [None]
  - BODY TEMPERATURE INCREASED [None]
  - ORAL PAIN [None]
  - SWOLLEN TONGUE [None]
